FAERS Safety Report 16163570 (Version 1)
Quarter: 2019Q2

REPORT INFORMATION
  Report Type: Spontaneous
  Country: US (occurrence: US)
  Receive Date: 20190304
  Receipt Date: 20190304
  Transmission Date: 20190711
  Serious: No
  Sender: FDA-Public Use
  Company Number: None

PATIENT
  Age: 55 Year
  Sex: Female

DRUGS (1)
  1. MYCOPHENOLATE MOFETIL 500MG TABLET [Suspect]
     Active Substance: MYCOPHENOLATE MOFETIL
     Dates: start: 20160825

REACTIONS (7)
  - Pain [None]
  - Lacrimation increased [None]
  - Sleep disorder [None]
  - Spinal pain [None]
  - Flank pain [None]
  - Headache [None]
  - Muscle tightness [None]

NARRATIVE: CASE EVENT DATE: 20181104
